FAERS Safety Report 6907131-2 (Version None)
Quarter: 2010Q3

REPORT INFORMATION
  Report Type: 
  Country: None (occurrence: None)
  Receive Date: 20100804
  Receipt Date: 20090412
  Transmission Date: 20110219
  Serious: Yes (Hospitalization)
  Sender: FDA-Public Use
  Company Number: US-PFIZER INC-2009175911

PATIENT
  Age: 52 Year
  Sex: Female

DRUGS (3)
  1. ADRIAMYCIN PFS [Suspect]
     Dosage: CYCLIC
     Dates: start: 20090130
  2. TAXOTERE [Suspect]
     Dosage: CYCLIC
     Dates: start: 20090130
  3. CYTOXAN [Suspect]
     Dosage: CYCLIC
     Dates: start: 20090130

REACTIONS (5)
  - ABDOMINAL PAIN [None]
  - DIARRHOEA [None]
  - GASTROINTESTINAL NECROSIS [None]
  - PYREXIA [None]
  - SHOCK [None]
